FAERS Safety Report 5861397-9 (Version None)
Quarter: 2008Q3

REPORT INFORMATION
  Report Type: 
  Country: None (occurrence: None)
  Receive Date: 20080827
  Receipt Date: 20080424
  Transmission Date: 20090109
  Serious: No
  Sender: FDA-Public Use
  Company Number: US-ABBOTT-08P-163-0448791-00

PATIENT
  Sex: Female
  Weight: 90.8 kg

DRUGS (9)
  1. NIASPAN [Suspect]
     Indication: BLOOD CHOLESTEROL INCREASED
     Route: 048
     Dates: start: 20080421
  2. CYCLOSPORINE [Concomitant]
     Indication: KERATOCONJUNCTIVITIS SICCA
  3. ESCITALOPRAM OXALATE [Concomitant]
     Indication: ANXIETY
     Route: 048
  4. HYDROCHLOROTHIAZIDE [Concomitant]
     Indication: HYPERTENSION
     Route: 048
  5. LISINOPRIL [Concomitant]
     Indication: HYPERTENSION
     Route: 048
  6. ACTOPLUS MET [Concomitant]
     Indication: GLUCOSE TOLERANCE IMPAIRED
     Dosage: 15MG/500MG (UNIT DOSE)
     Route: 048
  7. ATORVASTATIN CALCIUM [Concomitant]
     Indication: BLOOD CHOLESTEROL INCREASED
     Route: 048
  8. ANOVLAR [Concomitant]
     Indication: CONTRACEPTION
     Route: 048
  9. FEXOFENADINE [Concomitant]
     Indication: SEASONAL ALLERGY
     Route: 048

REACTIONS (4)
  - FLUSHING [None]
  - LIP SWELLING [None]
  - RASH [None]
  - SWELLING FACE [None]
